FAERS Safety Report 21354953 (Version 7)
Quarter: 2024Q3

REPORT INFORMATION
  Report Type: Spontaneous
  Country: US (occurrence: US)
  Receive Date: 20220920
  Receipt Date: 20240823
  Transmission Date: 20241017
  Serious: Yes (Hospitalization, Other)
  Sender: GLAXOSMITHKLINE
  Company Number: US-GSKCCFUS-Case-01500210_AE-85357

PATIENT

DRUGS (2)
  1. BENLYSTA [Suspect]
     Active Substance: BELIMUMAB
     Indication: Systemic lupus erythematosus
     Dosage: 200 MG/ML
     Dates: start: 2012
  2. LEVOTHYROXINE [Concomitant]
     Active Substance: LEVOTHYROXINE\LEVOTHYROXINE SODIUM
     Indication: Hypothyroidism
     Dosage: 100 MG, QD
     Dates: start: 1994

REACTIONS (6)
  - Cholecystectomy [Recovered/Resolved]
  - Surgery [Not Recovered/Not Resolved]
  - Wrong technique in device usage process [Unknown]
  - Product dose omission issue [Unknown]
  - Product storage error [Unknown]
  - Product complaint [Unknown]

NARRATIVE: CASE EVENT DATE: 20220901
